FAERS Safety Report 7784470-7 (Version None)
Quarter: 2011Q3

REPORT INFORMATION
  Report Type: 
  Country: None (occurrence: None)
  Receive Date: 20110928
  Receipt Date: 20110919
  Transmission Date: 20111222
  Serious: Yes (Hospitalization)
  Sender: FDA-Public Use
  Company Number: PHHY2011CA83566

PATIENT

DRUGS (4)
  1. AMOXICILLIN [Suspect]
     Indication: URINARY TRACT INFECTION
  2. SULFAMETHOXAZOLE AND TRIMETHOPRIM [Suspect]
     Indication: URINARY TRACT INFECTION
  3. SPIRONOLACTONE [Concomitant]
  4. NITROFURANTOIN [Suspect]
     Indication: URINARY TRACT INFECTION

REACTIONS (1)
  - HYPERKALAEMIA [None]
